FAERS Safety Report 6493443-6 (Version None)
Quarter: 2009Q4

REPORT INFORMATION
  Report Type: 
  Country: None (occurrence: None)
  Receive Date: 20091211
  Receipt Date: 20091211
  Transmission Date: 20100525
  Serious: Yes (Hospitalization)
  Sender: FDA-Public Use
  Company Number: None

PATIENT
  Sex: Male
  Weight: 93 kg

DRUGS (6)
  1. CYCLOPHOSPHAMIDE [Suspect]
     Dosage: 4080 MG
  2. CYTARABINE [Suspect]
     Dosage: 1800 MG
  3. MERCAPTOPURINE [Suspect]
     Dosage: 1800 MG
  4. METHOTREXATE [Suspect]
     Dosage: 60 MG
  5. PEG-L ASPARAGINASE (K-H) [Suspect]
     Dosage: 10200 IU
  6. VINCRISTINE SULFATE [Suspect]
     Dosage: 8 MG

REACTIONS (11)
  - ABDOMINAL TENDERNESS [None]
  - BILIARY TRACT DISORDER [None]
  - DIARRHOEA [None]
  - HEADACHE [None]
  - HEPATIC STEATOSIS [None]
  - INAPPROPRIATE SCHEDULE OF DRUG ADMINISTRATION [None]
  - INFECTION [None]
  - MUSCULOSKELETAL CHEST PAIN [None]
  - NAUSEA [None]
  - TREATMENT NONCOMPLIANCE [None]
  - VOMITING [None]
